FAERS Safety Report 5188501-2 (Version None)
Quarter: 2006Q4

REPORT INFORMATION
  Report Type: 
  Country: None (occurrence: None)
  Receive Date: 20061221
  Receipt Date: 20061214
  Transmission Date: 20070319
  Serious: Yes (Hospitalization)
  Sender: FDA-Public Use
  Company Number: FR-BRISTOL-MYERS SQUIBB COMPANY-13615455

PATIENT
  Age: 92 Year
  Sex: Female

DRUGS (1)
  1. APROVEL TABS 300 MG [Suspect]
     Route: 048

REACTIONS (1)
  - HYPONATRAEMIA [None]
